FAERS Safety Report 13989414 (Version 1)
Quarter: 2017Q3

REPORT INFORMATION
  Report Type: Spontaneous
  Country: US (occurrence: US)
  Receive Date: 20170920
  Receipt Date: 20170920
  Transmission Date: 20171128
  Serious: No
  Sender: FDA-Public Use
  Company Number: US-BAUSCH-BL-2016-022966

PATIENT
  Age: 5 Year
  Sex: Male

DRUGS (2)
  1. DIAZEPAM. [Suspect]
     Active Substance: DIAZEPAM
     Indication: MYOCLONIC EPILEPSY
  2. DIAZEPAM. [Suspect]
     Active Substance: DIAZEPAM
     Indication: CLONIC CONVULSION
     Dosage: APPLY 7.5 MG RECTALLY ONCE AS NEEDED FOR THE SEIZURE LASTING GREATER THAN 4 MINUTES, UP TO ONE DOSE
     Route: 054

REACTIONS (1)
  - Device use error [Unknown]
